FAERS Safety Report 21095439 (Version 2)
Quarter: 2022Q3

REPORT INFORMATION
  Report Type: Spontaneous
  Country: US (occurrence: US)
  Receive Date: 20220718
  Receipt Date: 20220720
  Transmission Date: 20221027
  Serious: No
  Sender: FDA-Public Use
  Company Number: US-SANOFI-01180915

PATIENT
  Age: 59 Year
  Sex: Male

DRUGS (1)
  1. DUPIXENT [Suspect]
     Active Substance: DUPILUMAB
     Indication: Dermatitis atopic
     Dosage: 300 MG QOW AND DRUG TREATMENT DURATION:STARTED BEGINNING OF JUN2022
     Dates: start: 202206

REACTIONS (3)
  - Skin discolouration [Unknown]
  - Peripheral swelling [Unknown]
  - Product preparation error [Unknown]
